FAERS Safety Report 17537990 (Version 1)
Quarter: 2020Q1

REPORT INFORMATION
  Report Type: Spontaneous
  Country: US (occurrence: US)
  Receive Date: 20200313
  Receipt Date: 20200313
  Transmission Date: 20200409
  Serious: No
  Sender: FDA-Public Use
  Company Number: US-APOTEX-2020AP007994

PATIENT
  Age: 87 Year
  Sex: Male

DRUGS (3)
  1. FLUTICASONE. [Suspect]
     Active Substance: FLUTICASONE
     Indication: COUGH
     Dosage: UNK UNK, QD, 2 SPRAYS ON EACH NOSTRILS
     Route: 045
     Dates: start: 20200212, end: 20200212
  2. FLUTICASONE. [Suspect]
     Active Substance: FLUTICASONE
     Indication: UPPER-AIRWAY COUGH SYNDROME
  3. LISINOPRIL. [Concomitant]
     Active Substance: LISINOPRIL
     Indication: BLOOD PRESSURE MEASUREMENT
     Dosage: 0.5 MG, BID, HALF A PILL IN THE MORNING AND HALF PILL AT NIGHT
     Route: 065

REACTIONS (7)
  - Vision blurred [Unknown]
  - Muscle twitching [Recovering/Resolving]
  - Restlessness [Recovering/Resolving]
  - Psychomotor hyperactivity [Recovering/Resolving]
  - Anxiety [Recovering/Resolving]
  - Feeling abnormal [Unknown]
  - Insomnia [Unknown]

NARRATIVE: CASE EVENT DATE: 202002
